FAERS Safety Report 4402343-4 (Version None)
Quarter: 2004Q3

REPORT INFORMATION
  Report Type: 
  Country: None (occurrence: None)
  Receive Date: 20040715
  Receipt Date: 20040707
  Transmission Date: 20050211
  Serious: Yes (Death, Life-Threatening, Hospitalization)
  Sender: FDA-Public Use
  Company Number: HQWYE921307JUL04

PATIENT
  Age: 69 Year
  Sex: Male
  Weight: 76.73 kg

DRUGS (2)
  1. MYLOTARG [Suspect]
     Indication: ACUTE MYELOID LEUKAEMIA
     Dosage: SEE IMAGE
     Route: 042
     Dates: start: 20040316, end: 20040316
  2. MYLOTARG [Suspect]
     Indication: ACUTE MYELOID LEUKAEMIA
     Dosage: SEE IMAGE
     Route: 042
     Dates: start: 20040330, end: 20040330

REACTIONS (12)
  - ASCITES [None]
  - BLOOD ALKALINE PHOSPHATASE INCREASED [None]
  - FEBRILE NEUTROPENIA [None]
  - HEPATIC FAILURE [None]
  - HERPES SIMPLEX [None]
  - LIVER SCAN ABNORMAL [None]
  - ORAL MUCOSAL BLISTERING [None]
  - PANCYTOPENIA [None]
  - RENAL NEOPLASM [None]
  - SEPSIS [None]
  - SPLENOMEGALY [None]
  - WEIGHT INCREASED [None]
